FAERS Safety Report 5692939-4 (Version None)
Quarter: 2008Q2

REPORT INFORMATION
  Report Type: 
  Country: None (occurrence: None)
  Receive Date: 20080328
  Receipt Date: 20070919
  Transmission Date: 20081010
  Serious: Yes (Other)
  Sender: FDA-Public Use
  Company Number: HQWYE230820SEP07

PATIENT
  Sex: Female

DRUGS (4)
  1. PROTONIX [Suspect]
     Indication: SCLERODERMA
     Dosage: ORAL
     Route: 048
     Dates: start: 20060101
  2. VIAGRA [Concomitant]
  3. CAPTOPRIL [Concomitant]
  4. WARFARIN SODIUM [Concomitant]

REACTIONS (1)
  - THROMBOCYTOPENIA [None]
